FAERS Safety Report 6515998-5 (Version None)
Quarter: 2009Q4

REPORT INFORMATION
  Report Type: 
  Country: None (occurrence: None)
  Receive Date: 20091223
  Receipt Date: 20090904
  Transmission Date: 20100525
  Serious: No
  Sender: FDA-Public Use
  Company Number: US-ABBOTT-09P-163-0595955-00

PATIENT
  Sex: Male
  Weight: 88.53 kg

DRUGS (3)
  1. LUPRON DEPOT [Suspect]
     Indication: PROSTATIC SPECIFIC ANTIGEN INCREASED
     Dates: start: 20090501
  2. COZAAR [Concomitant]
     Indication: HYPERTENSION
     Route: 048
     Dates: end: 20090801
  3. COZAAR [Concomitant]
     Route: 048
     Dates: start: 20090801

REACTIONS (2)
  - BLOOD GLUCOSE INCREASED [None]
  - HYPERTENSION [None]
